FAERS Safety Report 14959437 (Version 1)
Quarter: 2018Q2

REPORT INFORMATION
  Report Type: Spontaneous
  Country: US (occurrence: US)
  Receive Date: 20180531
  Receipt Date: 20180531
  Transmission Date: 20180711
  Serious: Yes (Hospitalization)
  Sender: FDA-Public Use
  Company Number: US-AKRON, INC.-2048803

PATIENT
  Age: 63 Year
  Sex: Male

DRUGS (1)
  1. LACTULOSE SOLUTION [Suspect]
     Active Substance: LACTULOSE
     Route: 048

REACTIONS (1)
  - Hepatic encephalopathy [Recovering/Resolving]
